FAERS Safety Report 4295365-8 (Version None)
Quarter: 2004Q1

REPORT INFORMATION
  Report Type: 
  Country: None (occurrence: None)
  Receive Date: 20040216
  Receipt Date: 20030630
  Transmission Date: 20041129
  Serious: No
  Sender: FDA-Public Use
  Company Number: US-GLAXOSMITHKLINE-A0414593A

PATIENT
  Sex: Female

DRUGS (7)
  1. LAMICTAL [Suspect]
     Indication: BIPOLAR DISORDER
     Dosage: 200MG PER DAY
     Route: 048
     Dates: start: 20020701
  2. SEROQUEL [Concomitant]
  3. LIPITOR [Concomitant]
  4. DYAZIDE [Concomitant]
  5. PREMARIN [Concomitant]
  6. NEXIUM [Concomitant]
  7. VALTREX [Concomitant]

REACTIONS (3)
  - DEPRESSION [None]
  - RASH [None]
  - THERAPEUTIC RESPONSE DECREASED [None]
